APPROVED DRUG PRODUCT: ONDANSETRON HYDROCHLORIDE
Active Ingredient: ONDANSETRON HYDROCHLORIDE
Strength: EQ 4MG BASE
Dosage Form/Route: TABLET;ORAL
Application: A203761 | Product #001 | TE Code: AB
Applicant: IPCA LABORATORIES LTD
Approved: Jan 23, 2014 | RLD: No | RS: No | Type: RX